FAERS Safety Report 24593982 (Version 2)
Quarter: 2024Q4

REPORT INFORMATION
  Report Type: Spontaneous
  Country: US (occurrence: US)
  Receive Date: 20241108
  Receipt Date: 20241210
  Transmission Date: 20250115
  Serious: No
  Sender: PFIZER
  Company Number: US-PFIZER INC-PV202400145131

PATIENT
  Age: 72 Year
  Sex: Female
  Weight: 41.28 kg

DRUGS (4)
  1. XELJANZ XR [Suspect]
     Active Substance: TOFACITINIB CITRATE
     Indication: Rheumatoid arthritis
     Dosage: 11 MG, DAILY
     Route: 048
     Dates: start: 202407
  2. PREDNISONE [Concomitant]
     Active Substance: PREDNISONE
     Indication: Rheumatoid arthritis
     Dosage: UNK UNK, 1X/DAY
  3. CELECOXIB [Concomitant]
     Active Substance: CELECOXIB
     Indication: Rheumatoid arthritis
     Dosage: UNK, 2X/DAY
  4. ALENDRONATE [Concomitant]
     Active Substance: ALENDRONATE SODIUM
     Indication: Osteoporosis
     Dosage: Q WEEK

REACTIONS (3)
  - Cough [Not Recovered/Not Resolved]
  - Toothache [Recovered/Resolved]
  - Tooth abscess [Recovered/Resolved]

NARRATIVE: CASE EVENT DATE: 20241105
